FAERS Safety Report 24328038 (Version 1)
Quarter: 2024Q3

REPORT INFORMATION
  Report Type: Spontaneous
  Country: US (occurrence: None)
  Receive Date: 20240916
  Receipt Date: 20240916
  Transmission Date: 20241017
  Serious: Yes (Life-Threatening)
  Sender: Public
  Company Number: None

PATIENT
  Age: 34 Year
  Sex: Female
  Weight: 69 kg

DRUGS (2)
  1. DIAZEPAM [Suspect]
     Active Substance: DIAZEPAM
     Indication: Anxiolytic therapy
     Dosage: FREQUENCY : ONCE;?
     Route: 042
     Dates: start: 20240904, end: 20240904
  2. DIAZEPAM [Suspect]
     Active Substance: DIAZEPAM
     Indication: Preoperative care

REACTIONS (3)
  - Unresponsive to stimuli [None]
  - Pulse absent [None]
  - Hyporesponsive to stimuli [None]

NARRATIVE: CASE EVENT DATE: 20240904
